FAERS Safety Report 4669027-9 (Version None)
Quarter: 2005Q2

REPORT INFORMATION
  Report Type: 
  Country: None (occurrence: None)
  Receive Date: 20050523
  Receipt Date: 20050314
  Transmission Date: 20051028
  Serious: Yes (Other)
  Sender: FDA-Public Use
  Company Number: PHNU2005DE01363

PATIENT
  Age: 76 Year
  Sex: Female
  Weight: 66 kg

DRUGS (3)
  1. ZOMETA [Suspect]
     Indication: PLASMACYTOMA
     Dosage: 4 MG, QMO
     Route: 042
     Dates: start: 20040422, end: 20040907
  2. BONDRONAT [Suspect]
     Dosage: 6 MG, QMO
     Route: 042
     Dates: start: 20041005, end: 20041228
  3. FERRO DUODENAL ^SANOL^ [Concomitant]
     Indication: ANAEMIA
     Dosage: 100 MG, QD
     Route: 048
     Dates: start: 20041130, end: 20050125

REACTIONS (6)
  - ERYTHEMA [None]
  - OSTEONECROSIS [None]
  - PAIN [None]
  - PROCEDURAL SITE REACTION [None]
  - SWELLING [None]
  - TOOTH EXTRACTION [None]
